FAERS Safety Report 5710576-X (Version None)
Quarter: 2008Q2

REPORT INFORMATION
  Report Type: 
  Country: None (occurrence: None)
  Receive Date: 20080415
  Receipt Date: 20080403
  Transmission Date: 20081010
  Serious: Yes (Other)
  Sender: FDA-Public Use
  Company Number: PAR_02162_2008

PATIENT
  Sex: Male
  Weight: 77.1115 kg

DRUGS (4)
  1. OXANDROLONE [Suspect]
     Indication: WEIGHT GAIN POOR
     Dosage: (10 MG QD ORAL)
     Route: 048
     Dates: start: 20071201
  2. COREG [Concomitant]
  3. DIGOXIN [Concomitant]
  4. AMIODARONE HCL [Concomitant]

REACTIONS (4)
  - CARDIAC FAILURE CONGESTIVE [None]
  - DYSPNOEA [None]
  - HEART INJURY [None]
  - OEDEMA PERIPHERAL [None]
